FAERS Safety Report 16655582 (Version 1)
Quarter: 2019Q3

REPORT INFORMATION
  Report Type: Report from Study
  Country: ES (occurrence: ES)
  Receive Date: 20190801
  Receipt Date: 20190801
  Transmission Date: 20191004
  Serious: Yes (Hospitalization)
  Sender: FDA-Public Use
  Company Number: ES-TEVA-2019-ES-1086230

PATIENT
  Age: 84 Year
  Sex: Female

DRUGS (6)
  1. RANEXA 500 MG COMPRIMIDOS DE LIBERACION PROLONGADA, 60 COMPRIMIDOS [Concomitant]
     Indication: ISCHAEMIC CARDIOMYOPATHY
     Dosage: 1 GRAM
     Route: 048
     Dates: start: 201205
  2. NITRODERM MATRIX 10 MG/24 H PARCHES TRANSDERMICOS , 30 PARCHES [Concomitant]
     Indication: ISCHAEMIC CARDIOMYOPATHY
     Dosage: 10 MG
     Route: 062
     Dates: start: 201002
  3. CLOPIDOGREL [Suspect]
     Active Substance: CLOPIDOGREL BISULFATE
     Indication: THROMBOSIS PROPHYLAXIS
     Dosage: 75 MG/DAYS
     Route: 048
     Dates: start: 201002, end: 20190224
  4. BRINZOLAMIDA (1142A) [Concomitant]
     Indication: GLAUCOMA
     Dosage: 10 MG/DAYS
     Route: 047
     Dates: start: 201504
  5. ADIRO 100 MG COMPRIMIDOS GASTRORRESISTENTES EFG, 30 COMPRIMIDOS (POLIP [Interacting]
     Active Substance: ASPIRIN
     Indication: THROMBOSIS PROPHYLAXIS
     Dosage: 100 MG/DAYS
     Route: 048
     Dates: start: 201607, end: 20190224
  6. ATORVASTATINA (7400A) [Concomitant]
     Active Substance: ATORVASTATIN
     Indication: DYSLIPIDAEMIA
     Dosage: 40  MG/DAYS
     Route: 048
     Dates: start: 201002

REACTIONS (2)
  - Upper gastrointestinal haemorrhage [Recovered/Resolved]
  - Drug interaction [Unknown]

NARRATIVE: CASE EVENT DATE: 20190224
